FAERS Safety Report 25331524 (Version 1)
Quarter: 2025Q2

REPORT INFORMATION
  Report Type: Spontaneous
  Country: US (occurrence: None)
  Receive Date: 20250519
  Receipt Date: 20250519
  Transmission Date: 20250717
  Serious: Yes (Other)
  Sender: FDA-CTU
  Company Number: None

PATIENT
  Sex: Female

DRUGS (1)
  1. DUPIXENT [Suspect]
     Active Substance: DUPILUMAB
     Route: 058
     Dates: start: 20250504, end: 20250518

REACTIONS (6)
  - Incorrect dose administered [None]
  - Wrong technique in product usage process [None]
  - Injection site rash [None]
  - Rash erythematous [None]
  - Rash [None]
  - Cellulitis [None]
